FAERS Safety Report 20527067 (Version 2)
Quarter: 2022Q1

REPORT INFORMATION
  Report Type: Spontaneous
  Country: US (occurrence: US)
  Receive Date: 20220228
  Receipt Date: 20220324
  Transmission Date: 20220423
  Serious: No
  Sender: FDA-Public Use
  Company Number: US-BAUSCH-BL-2022-005131

PATIENT
  Age: 88 Year
  Sex: Female
  Weight: 64.468 kg

DRUGS (2)
  1. LUMIFY [Suspect]
     Active Substance: BRIMONIDINE TARTRATE
     Indication: Ocular hyperaemia
     Dosage: STOP DATE WAS 19/FEB/2022
     Route: 047
     Dates: start: 20220217, end: 20220218
  2. LUMIFY [Suspect]
     Active Substance: BRIMONIDINE TARTRATE

REACTIONS (4)
  - Glare [Not Recovered/Not Resolved]
  - Eye disorder [Unknown]
  - Dry mouth [Recovered/Resolved]
  - Instillation site pain [Unknown]

NARRATIVE: CASE EVENT DATE: 20220201
